FAERS Safety Report 6437956-1 (Version None)
Quarter: 2009Q4

REPORT INFORMATION
  Report Type: 
  Country: None (occurrence: None)
  Receive Date: 20091112
  Receipt Date: 20081223
  Transmission Date: 20100525
  Serious: No
  Sender: FDA-Public Use
  Company Number: US-ASTRAZENECA-2009UW18065

PATIENT

DRUGS (1)
  1. PRILOSEC OTC [Suspect]
     Indication: GASTROINTESTINAL DISORDER
     Dosage: 1 TABLET, 1 ONLY FOR 1 DAY
     Route: 048

REACTIONS (1)
  - GASTRIC DISORDER [None]
